FAERS Safety Report 5165822-0 (Version None)
Quarter: 2006Q4

REPORT INFORMATION
  Report Type: 
  Country: None (occurrence: None)
  Receive Date: 20061128
  Receipt Date: 20061113
  Transmission Date: 20070319
  Serious: Yes (Other)
  Sender: FDA-Public Use
  Company Number: 2006BL005034

PATIENT
  Age: 53 Year
  Sex: Male

DRUGS (3)
  1. DEXAMETHASONE [Suspect]
     Indication: LYMPHOMA
     Dosage: ONCE A DAY; ORAL
     Route: 048
  2. FLUDARA [Suspect]
     Indication: LYMPHOMA
     Dosage: 8 CYCLICAL; ORAL
     Route: 048
  3. MITOXANTRONE [Suspect]
     Indication: LYMPHOMA
     Dosage: ONCE A DAY; INTRAVENOUS
     Route: 042

REACTIONS (2)
  - DRUG WITHDRAWAL SYNDROME [None]
  - OSTEONECROSIS [None]
